FAERS Safety Report 4368650-9 (Version None)
Quarter: 2004Q2

REPORT INFORMATION
  Report Type: 
  Country: None (occurrence: None)
  Receive Date: 20040602
  Receipt Date: 20040512
  Transmission Date: 20050107
  Serious: Yes (Hospitalization)
  Sender: FDA-Public Use
  Company Number: CA-SHR-04-024482

PATIENT
  Age: 29 Year
  Sex: Female

DRUGS (2)
  1. BETASERON [Suspect]
     Indication: MULTIPLE SCLEROSIS
     Dosage: 8 MIU, EVERY 2D, SUBCUTANEOUS
     Route: 058
     Dates: start: 20020731
  2. DIFLUNISAL [Concomitant]

REACTIONS (5)
  - DERMAL CYST [None]
  - INFECTED SEBACEOUS CYST [None]
  - INFLAMMATION LOCALISED [None]
  - KELOID SCAR [None]
  - POST PROCEDURAL PAIN [None]
